FAERS Safety Report 7395634-9 (Version None)
Quarter: 2011Q2

REPORT INFORMATION
  Report Type: 
  Country: None (occurrence: None)
  Receive Date: 20110405
  Receipt Date: 20110331
  Transmission Date: 20111010
  Serious: Yes (Other)
  Sender: FDA-Public Use
  Company Number: CHPA2011AU04691

PATIENT
  Sex: Female

DRUGS (3)
  1. BENEFIBER W/ WHEAT DEXTRIN [Suspect]
     Indication: BOWEL MOVEMENT IRREGULARITY
     Dosage: 2 TSP, QD
     Route: 048
  2. PARIET [Concomitant]
     Dosage: UNK, UNK
     Route: 065
  3. LIPITOR [Concomitant]
     Dosage: UNK, UNK
     Route: 065

REACTIONS (4)
  - HYSTERECTOMY [None]
  - INFREQUENT BOWEL MOVEMENTS [None]
  - FAECES HARD [None]
  - OFF LABEL USE [None]
